FAERS Safety Report 8782766 (Version 1)
Quarter: 2012Q4

REPORT INFORMATION
  Report Type: 
  Country: PH (occurrence: PH)
  Receive Date: 20120913
  Receipt Date: 20120913
  Transmission Date: 20130627
  Serious: Yes (Death, Hospitalization)
  Sender: FDA-Public Use
  Company Number: PH-B.I. PHARMACEUTICALS,INC./RIDGEFIELD-2012-CS-01296RP

PATIENT
  Age: 82 Year
  Sex: Female

DRUGS (1)
  1. PRADAXA [Suspect]
     Indication: SUPRAVENTRICULAR TACHYCARDIA
     Dosage: 220 mg
     Route: 048
     Dates: start: 201209, end: 20120908

REACTIONS (3)
  - Cerebral haemorrhage [Fatal]
  - Upper gastrointestinal haemorrhage [Fatal]
  - Haematuria [Unknown]
